FAERS Safety Report 18375838 (Version 1)
Quarter: 2020Q4

REPORT INFORMATION
  Report Type: Spontaneous
  Country: US (occurrence: US)
  Receive Date: 20201009
  Receipt Date: 20201009
  Transmission Date: 20210114
  Serious: No
  Sender: FDA-Public Use
  Company Number: None

PATIENT
  Age: 77 Year
  Sex: Male

DRUGS (3)
  1. PREGABALIN 75MG [Concomitant]
     Active Substance: PREGABALIN
     Dates: start: 20200928
  2. PREDNISONE. [Suspect]
     Active Substance: PREDNISONE
     Dates: start: 20200929
  3. ALLOPURINOL 100MG [Concomitant]
     Active Substance: ALLOPURINOL
     Dates: start: 20200908

REACTIONS (4)
  - Pain [None]
  - Therapy interrupted [None]
  - Expired product administered [None]
  - Inadequate analgesia [None]

NARRATIVE: CASE EVENT DATE: 20201009
